FAERS Safety Report 6228392-1 (Version None)
Quarter: 2009Q2

REPORT INFORMATION
  Report Type: 
  Country: None (occurrence: None)
  Receive Date: 20090612
  Receipt Date: 20090607
  Transmission Date: 20091009
  Serious: No
  Sender: FDA-Public Use
  Company Number: US-B.I. PHARMACEUTICALS,INC./RIDGEFIELD-2009-BP-06978BP

PATIENT
  Sex: Female

DRUGS (3)
  1. SPIRIVA [Suspect]
     Indication: EMPHYSEMA
     Dosage: 18MCG
     Route: 055
     Dates: start: 20090201
  2. ADVAIR HFA [Concomitant]
     Indication: BRONCHITIS
     Route: 055
     Dates: start: 20081201
  3. ALBUTEROL [Concomitant]
     Indication: BRONCHITIS
     Dosage: 720MG
     Route: 055
     Dates: start: 20090501

REACTIONS (2)
  - ARTHRALGIA [None]
  - TREMOR [None]
